FAERS Safety Report 10845820 (Version 1)
Quarter: 2015Q1

REPORT INFORMATION
  Report Type: Spontaneous
  Country: US (occurrence: US)
  Receive Date: 20150220
  Receipt Date: 20150220
  Transmission Date: 20150721
  Serious: No
  Sender: FDA-Public Use
  Company Number: US-ABBVIE-14P-163-1314213-00

PATIENT

DRUGS (4)
  1. PREDNISONE. [Suspect]
     Active Substance: PREDNISONE
     Indication: PRODUCT USED FOR UNKNOWN INDICATION
     Route: 065
     Dates: start: 201405
  2. PREDNISONE. [Suspect]
     Active Substance: PREDNISONE
     Route: 065
     Dates: start: 201407
  3. HUMIRA [Suspect]
     Active Substance: ADALIMUMAB
     Indication: PRODUCT USED FOR UNKNOWN INDICATION
     Dosage: STARTER DOSE: 4 SHOTS OF 40MG EACH
     Route: 065
     Dates: start: 20140714
  4. TRAMADOL [Concomitant]
     Active Substance: TRAMADOL
     Indication: PRODUCT USED FOR UNKNOWN INDICATION
     Dates: end: 201407

REACTIONS (14)
  - Diarrhoea [Unknown]
  - Dizziness [Unknown]
  - Abdominal tenderness [Unknown]
  - Night sweats [Unknown]
  - Heart rate increased [Not Recovered/Not Resolved]
  - Feeling abnormal [Unknown]
  - Decreased appetite [Unknown]
  - Disorientation [Unknown]
  - Sleep disorder [Unknown]
  - Asthenia [Unknown]
  - Proctalgia [Unknown]
  - Poor quality sleep [Unknown]
  - Emotional distress [Unknown]
  - Muscle spasms [Unknown]
